FAERS Safety Report 23033239 (Version 1)
Quarter: 2023Q4

REPORT INFORMATION
  Report Type: Spontaneous
  Country: US (occurrence: US)
  Receive Date: 20231005
  Receipt Date: 20231005
  Transmission Date: 20240110
  Serious: Yes (Other)
  Sender: FDA-Public Use
  Company Number: US-ALCON LABORATORIES-ALC2023US004477

PATIENT
  Age: 78 Year
  Sex: Male

DRUGS (1)
  1. SYSTANE ULTRA [Suspect]
     Active Substance: POLYETHYLENE GLYCOL 400\PROPYLENE GLYCOL
     Indication: Dry eye
     Dosage: 5 TIMES A DAY FOR A YEAR
     Route: 047

REACTIONS (3)
  - Eye ulcer [Recovering/Resolving]
  - Dacryostenosis acquired [Recovering/Resolving]
  - Eye pruritus [Recovering/Resolving]
